FAERS Safety Report 15236796 (Version 1)
Quarter: 2018Q3

REPORT INFORMATION
  Report Type: Spontaneous
  Country: US (occurrence: US)
  Receive Date: 20180710
  Receipt Date: 20180710
  Transmission Date: 20181010
  Serious: No
  Sender: FDA-Public Use
  Company Number: None

PATIENT
  Sex: Male

DRUGS (2)
  1. PREVACID [Suspect]
     Active Substance: LANSOPRAZOLE
  2. DEXILANT [Suspect]
     Active Substance: DEXLANSOPRAZOLE

REACTIONS (2)
  - Treatment failure [None]
  - Drug ineffective [None]
